FAERS Safety Report 6662639-2 (Version None)
Quarter: 2010Q1

REPORT INFORMATION
  Report Type: 
  Country: None (occurrence: None)
  Receive Date: 20100329
  Receipt Date: 20100316
  Transmission Date: 20100710
  Serious: Yes (Other)
  Sender: FDA-Public Use
  Company Number: 1000012709

PATIENT
  Age: 78 Year
  Sex: Female

DRUGS (9)
  1. ESCITALOPRAM [Suspect]
     Dosage: 10 MG (10 MG, 1 IN 1 D), ORAL
     Route: 048
     Dates: start: 20100105, end: 20100121
  2. ESCITALOPRAM [Suspect]
     Dosage: 15 MG (15 MG, 1 IN 1 D), ORAL
     Route: 048
     Dates: start: 20100122, end: 20100305
  3. HALDOL (2 MILLIGRAM/MILLILITERS, SOLUTION) [Concomitant]
  4. DOMINAL (TABLETS) [Concomitant]
  5. IMPROMEN (2 MILLIGRAM/MILLILITERS, SOLUTION) [Concomitant]
  6. NOOTROPIL (TABLETS) [Concomitant]
  7. TRAZOLAN (TABLETS) [Concomitant]
  8. LYSANXIA (15 MILLIGRAM/MILLILITERS, SOLUTION) [Concomitant]
  9. NOBITEN (TABLETS) [Concomitant]

REACTIONS (2)
  - DYSARTHRIA [None]
  - PARKINSONISM [None]
